FAERS Safety Report 7266594-6 (Version None)
Quarter: 2011Q1

REPORT INFORMATION
  Report Type: 
  Country: None (occurrence: None)
  Receive Date: 20110131
  Receipt Date: 20110124
  Transmission Date: 20110831
  Serious: Yes (Other)
  Sender: FDA-Public Use
  Company Number: US-MERCK-1101USA02503

PATIENT
  Sex: Male

DRUGS (3)
  1. PANTOPRAZOLE TEVA [Suspect]
     Route: 048
     Dates: start: 20091001
  2. COZAAR [Suspect]
     Indication: CARDIAC DISORDER
     Route: 048
  3. METOPROLOL [Suspect]
     Indication: CARDIAC DISORDER
     Route: 048

REACTIONS (4)
  - ABDOMINAL PAIN UPPER [None]
  - HEADACHE [None]
  - DRUG INEFFECTIVE [None]
  - CARDIAC DISORDER [None]
